FAERS Safety Report 4989676-8 (Version None)
Quarter: 2006Q2

REPORT INFORMATION
  Report Type: 
  Country: None (occurrence: None)
  Receive Date: 20060426
  Receipt Date: 20060410
  Transmission Date: 20061013
  Serious: Yes (Hospitalization)
  Sender: FDA-Public Use
  Company Number: US200604001605

PATIENT
  Age: 82 Year
  Sex: Female
  Weight: 40.4 kg

DRUGS (1)
  1. GEMZAR [Suspect]
     Indication: LYMPHOMA
     Dosage: SEE IMAGE
     Route: 042
     Dates: start: 20060403

REACTIONS (1)
  - BURNS THIRD DEGREE [None]
